FAERS Safety Report 10389141 (Version 2)
Quarter: 2014Q4

REPORT INFORMATION
  Report Type: Spontaneous
  Country: JP (occurrence: JP)
  Receive Date: 20140817
  Receipt Date: 20141114
  Transmission Date: 20150528
  Serious: Yes (Death, Other)
  Sender: FDA-Public Use
  Company Number: PHHY2013JP160092

PATIENT
  Age: 74 Year
  Sex: Male
  Weight: 51 kg

DRUGS (9)
  1. AFINITOR [Suspect]
     Active Substance: EVEROLIMUS
     Dosage: 5 MG, QD
     Route: 048
     Dates: end: 20120924
  2. INLYTA [Suspect]
     Active Substance: AXITINIB
     Indication: DECREASED APPETITE
     Dosage: 10 MG, QD
     Route: 048
     Dates: start: 20121022, end: 20121105
  3. INLYTA [Suspect]
     Active Substance: AXITINIB
     Indication: COGNITIVE DISORDER
  4. TAKEPRON [Concomitant]
     Active Substance: LANSOPRAZOLE
     Indication: GASTRITIS
     Dosage: 15 MG
     Route: 048
     Dates: start: 20111129
  5. GOSHAJINKIGAN [Concomitant]
     Active Substance: HERBALS
     Indication: BENIGN PROSTATIC HYPERPLASIA
     Dosage: 7.5 MG
     Route: 048
     Dates: start: 20120210
  6. HARNAL [Concomitant]
     Active Substance: TAMSULOSIN HYDROCHLORIDE
     Indication: BENIGN PROSTATIC HYPERPLASIA
     Dosage: 0.2 MG
     Route: 048
     Dates: start: 20120210
  7. APIDRA [Concomitant]
     Active Substance: INSULIN GLULISINE
     Indication: DIABETES MELLITUS
     Route: 065
     Dates: start: 20111201
  8. AFINITOR [Suspect]
     Active Substance: EVEROLIMUS
     Indication: METASTATIC RENAL CELL CARCINOMA
     Dosage: 5 MG, QD
     Route: 048
     Dates: start: 20120523, end: 20120603
  9. LANTUS [Concomitant]
     Active Substance: INSULIN GLARGINE
     Indication: DIABETES MELLITUS
     Route: 065
     Dates: start: 20111222

REACTIONS (8)
  - Malignant neoplasm progression [Not Recovered/Not Resolved]
  - Rash [Recovering/Resolving]
  - Pruritus [Recovering/Resolving]
  - Decreased appetite [Unknown]
  - Cognitive disorder [Not Recovered/Not Resolved]
  - Cough [Recovering/Resolving]
  - Death [Fatal]
  - Lymphangiosis carcinomatosa [Recovering/Resolving]

NARRATIVE: CASE EVENT DATE: 201205
